FAERS Safety Report 14566579 (Version 6)
Quarter: 2018Q2

REPORT INFORMATION
  Report Type: Spontaneous
  Country: DE (occurrence: DE)
  Receive Date: 20180223
  Receipt Date: 20180618
  Transmission Date: 20180711
  Serious: Yes (Hospitalization, Other)
  Sender: FDA-Public Use
  Company Number: PHHY2017DE183873

PATIENT
  Age: 44 Year
  Sex: Female

DRUGS (35)
  1. FILGRASTIM [Suspect]
     Active Substance: FILGRASTIM
     Indication: PRODUCT USED FOR UNKNOWN INDICATION
     Dosage: 48 IU, UNK (DAY 2 TO 4)
     Route: 065
  2. DOCETAXEL. [Suspect]
     Active Substance: DOCETAXEL
     Dosage: 25 MG/M2, Q3WK, MAINTENANCE DOSE (AS PER PROTOCOL) DATE OF LAST DOSE PRIOR TO SAE:12/OCT/2017
     Route: 042
     Dates: start: 20170920
  3. HERCEPTIN [Suspect]
     Active Substance: TRASTUZUMAB
     Indication: HER-2 POSITIVE BREAST CANCER
     Dosage: 8 MG/KG, QD (LOADING DOSE (AS PER PROTOCOL) )
     Route: 042
     Dates: start: 20170920
  4. HERCEPTIN [Suspect]
     Active Substance: TRASTUZUMAB
     Dosage: 6 MG/KG, QW (MAINTENANCE DOSE)
     Route: 042
     Dates: start: 20171012
  5. ZOFRAN [Concomitant]
     Active Substance: ONDANSETRON HYDROCHLORIDE
     Indication: VOMITING
  6. DOCETAXEL. [Suspect]
     Active Substance: DOCETAXEL
     Dosage: 35 MG/M2, Q3W
     Route: 042
     Dates: start: 20170920
  7. DEXAMETHASON [Concomitant]
     Active Substance: DEXAMETHASONE
     Dosage: 4 MG, UNK
     Route: 065
  8. PREGABALIN. [Concomitant]
     Active Substance: PREGABALIN
     Indication: EPILEPSY
  9. ZOPICLONE [Concomitant]
     Active Substance: ZOPICLONE
     Dosage: 7.5 MG, QD
     Route: 065
     Dates: start: 20171115
  10. MIRTAZAPIN [Concomitant]
     Active Substance: MIRTAZAPINE
     Dosage: 15 MG, UNK
     Route: 065
  11. HERCEPTIN [Suspect]
     Active Substance: TRASTUZUMAB
     Dosage: 6 MG/KG, QW (MAINTENANCE DOSE)
     Route: 042
  12. PREGABALIN. [Concomitant]
     Active Substance: PREGABALIN
     Indication: ANXIETY DISORDER
  13. FILGRASTIM [Suspect]
     Active Substance: FILGRASTIM
     Dosage: 48 IU, UNK (DAY 2 TO 4)
     Route: 065
     Dates: start: 20171012
  14. ZOFRAN [Concomitant]
     Active Substance: ONDANSETRON HYDROCHLORIDE
     Indication: NAUSEA
  15. ZOFRAN [Concomitant]
     Active Substance: ONDANSETRON HYDROCHLORIDE
     Indication: VOMITING
  16. TRASTUZUMAB. [Suspect]
     Active Substance: TRASTUZUMAB
     Indication: HER-2 POSITIVE BREAST CANCER
     Dosage: 8 MG/KG, Q3W, 8 MG/KG, Q3WK LOADING DOSE
     Route: 042
     Dates: start: 20170920
  17. TRASTUZUMAB. [Suspect]
     Active Substance: TRASTUZUMAB
     Dosage: 6 MG/KG, Q3W
     Route: 042
     Dates: start: 20170920
  18. ZOPICLONE [Concomitant]
     Active Substance: ZOPICLONE
     Indication: SLEEP DISORDER
  19. DOCETAXEL. [Suspect]
     Active Substance: DOCETAXEL
     Dosage: 25 MG/M2, QD (MAINTENANCE DOSE)
     Route: 042
     Dates: start: 20171012
  20. PERTUZUMAB. [Suspect]
     Active Substance: PERTUZUMAB
     Dosage: 840 MG/KG, QD (LOADING DOSE AS PER PROTOCOL)
     Route: 042
     Dates: start: 20170920
  21. DEXAMETHASON [Concomitant]
     Active Substance: DEXAMETHASONE
     Indication: INFLAMMATION
  22. ONDANSETRON A [Concomitant]
     Active Substance: ONDANSETRON HYDROCHLORIDE
     Indication: VOMITING
  23. PREGABALIN. [Concomitant]
     Active Substance: PREGABALIN
     Dosage: 350 MG, UNK
     Route: 065
  24. PREGABALIN. [Concomitant]
     Active Substance: PREGABALIN
     Indication: NEURALGIA
  25. PANTOPRAZOLE [Concomitant]
     Active Substance: PANTOPRAZOLE
     Indication: PRODUCT USED FOR UNKNOWN INDICATION
     Dosage: 20 MG, UNK
     Route: 065
  26. OXYCODON [Concomitant]
     Active Substance: OXYCODONE
     Dosage: 20 MG, UNK
     Route: 065
  27. MIRTAZAPIN [Concomitant]
     Active Substance: MIRTAZAPINE
     Indication: DEPRESSION
     Dosage: 30 MG, UNK
     Route: 065
  28. DOCETAXEL. [Suspect]
     Active Substance: DOCETAXEL
     Indication: HER-2 POSITIVE BREAST CANCER
     Dosage: 75 MG/M2, QD LOADING DOSE (AS PER PROTOCOL)
     Route: 042
     Dates: start: 20170920
  29. PERTUZUMAB. [Suspect]
     Active Substance: PERTUZUMAB
     Indication: HER-2 POSITIVE BREAST CANCER
     Dosage: 420 MG/KG, Q3WK, MAINTENANCE DOSE (AS PER PROTOCOL)DATE OF LAST DOSE PRIOR TO SAE:12
     Route: 042
     Dates: start: 20170920
  30. ONDANSETRON A [Concomitant]
     Active Substance: ONDANSETRON HYDROCHLORIDE
     Indication: NAUSEA
  31. ONDANSETRON A [Concomitant]
     Active Substance: ONDANSETRON HYDROCHLORIDE
     Indication: VOMITING
  32. PREGABALIN. [Concomitant]
     Active Substance: PREGABALIN
     Indication: ANXIETY DISORDER
  33. OXYCODON [Concomitant]
     Active Substance: OXYCODONE
     Indication: PAIN
  34. ONDANSETRON A [Concomitant]
     Active Substance: ONDANSETRON HYDROCHLORIDE
     Dosage: 8 MG, UNK
     Route: 065
  35. ZOFRAN [Concomitant]
     Active Substance: ONDANSETRON HYDROCHLORIDE
     Dosage: UNK
     Route: 065

REACTIONS (9)
  - Anaemia [Not Recovered/Not Resolved]
  - Thrombocytopenia [Not Recovered/Not Resolved]
  - Stomatitis [Recovered/Resolved]
  - Polyneuropathy [Not Recovered/Not Resolved]
  - Fatigue [Not Recovered/Not Resolved]
  - Anaemia [Not Recovered/Not Resolved]
  - Diarrhoea [Not Recovered/Not Resolved]
  - Neutropenia [Not Recovered/Not Resolved]
  - Dizziness [Not Recovered/Not Resolved]

NARRATIVE: CASE EVENT DATE: 20170920
